FAERS Safety Report 9764300 (Version 1)
Quarter: 2013Q4

REPORT INFORMATION
  Report Type: Report from Study
  Country: CA (occurrence: CA)
  Receive Date: 20131217
  Receipt Date: 20131217
  Transmission Date: 20140711
  Serious: Yes (Other)
  Sender: FDA-Public Use
  Company Number: CA-ROCHE-1321169

PATIENT
  Age: 62 Year
  Sex: Male

DRUGS (2)
  1. RITUXAN [Suspect]
     Indication: CHRONIC LYMPHOCYTIC LEUKAEMIA
     Route: 065
     Dates: start: 20130213, end: 20130612
  2. FLUDARABINE [Suspect]
     Indication: CHRONIC LYMPHOCYTIC LEUKAEMIA
     Route: 065
     Dates: start: 20130213, end: 20130612

REACTIONS (2)
  - Bone marrow failure [Unknown]
  - Disease progression [Unknown]
